FAERS Safety Report 14935123 (Version 4)
Quarter: 2018Q3

REPORT INFORMATION
  Report Type: Spontaneous
  Country: US (occurrence: US)
  Receive Date: 20180524
  Receipt Date: 20180709
  Transmission Date: 20181010
  Serious: Yes (Other)
  Sender: FDA-Public Use
  Company Number: US-CELGENEUS-USA-20180507671

PATIENT
  Sex: Female
  Weight: 36.32 kg

DRUGS (1)
  1. POMALYST [Suspect]
     Active Substance: POMALIDOMIDE
     Indication: PLASMA CELL MYELOMA IN REMISSION
     Dosage: 4 MILLIGRAM
     Route: 048
     Dates: start: 20180503, end: 20180622

REACTIONS (3)
  - Deafness [Unknown]
  - Rash [Recovering/Resolving]
  - Blister [Unknown]

NARRATIVE: CASE EVENT DATE: 2018
